FAERS Safety Report 5215771-4 (Version None)
Quarter: 2007Q1

REPORT INFORMATION
  Report Type: 
  Country: None (occurrence: None)
  Receive Date: 20070118
  Receipt Date: 20070107
  Transmission Date: 20070707
  Serious: Yes (Other)
  Sender: FDA-Public Use
  Company Number: 2007302220

PATIENT
  Age: 18 Month
  Sex: Male
  Weight: 11.8 kg

DRUGS (2)
  1. BENADRYL [Suspect]
     Indication: HYPERSENSITIVITY
     Dosage: LESS THAN 1 TEASPOON
     Dates: start: 20070105, end: 20070105
  2. MONTELUKAST SODIUM (MONTELUKAST SODIUM) [Concomitant]

REACTIONS (2)
  - CRYING [None]
  - FACIAL PALSY [None]
